FAERS Safety Report 4943853-0 (Version None)
Quarter: 2006Q1

REPORT INFORMATION
  Report Type: 
  Country: None (occurrence: None)
  Receive Date: 20060310
  Receipt Date: 20060221
  Transmission Date: 20060701
  Serious: Yes (Other)
  Sender: FDA-Public Use
  Company Number: 222356

PATIENT
  Age: 76 Year
  Sex: Male
  Weight: 161 kg

DRUGS (9)
  1. RITUXAN [Suspect]
     Indication: NON-HODGKIN'S LYMPHOMA
     Dosage: 620 MG, INTRAVENOUS
     Route: 042
     Dates: start: 20050203, end: 20050302
  2. DOXORUBICIN HYDROCHLORIDE [Suspect]
     Indication: NON-HODGKIN'S LYMPHOMA
     Dosage: 80 MG, INTRAVENOUS
     Route: 042
     Dates: start: 20050204, end: 20050303
  3. ENDOXAN(CYCLOPHOSPHAMIDE) [Suspect]
     Indication: NON-HODGKIN'S LYMPHOMA
     Dosage: 1200 MG, INTRAVENOUS
     Route: 042
     Dates: start: 20050204, end: 20050303
  4. ONCOVIN [Suspect]
     Indication: NON-HODGKIN'S LYMPHOMA
     Dosage: 2 MG INTRAVENOUS
     Route: 042
     Dates: start: 20050204, end: 20050303
  5. PREDONINE(PREDNISOLONE, PREDNISOLONE ACETATE, PREDNISOLONE SODIUM SUCC [Suspect]
     Indication: NON-HODGKIN'S LYMPHOMA
     Dosage: 100 MG, ORAL
     Route: 048
     Dates: start: 20050204, end: 20050303
  6. LOXONIN (LOXOPROFEN SODIUM) [Concomitant]
  7. RESTAMIN (CHLORPHENIRAMINE MALEATE) [Concomitant]
  8. HEPARIN [Concomitant]
  9. OMEPRAZOLE [Concomitant]

REACTIONS (7)
  - CEREBRAL INFARCTION [None]
  - GASTRIC ULCER [None]
  - HAEMATEMESIS [None]
  - MONOPLEGIA [None]
  - NEUTROPENIA [None]
  - NEUTROPHIL COUNT DECREASED [None]
  - WHITE BLOOD CELL COUNT DECREASED [None]
